FAERS Safety Report 15483260 (Version 1)
Quarter: 2018Q4

REPORT INFORMATION
  Report Type: Spontaneous
  Country: JP (occurrence: JP)
  Receive Date: 20181010
  Receipt Date: 20181010
  Transmission Date: 20190205
  Serious: Yes (Other)
  Sender: FDA-Public Use
  Company Number: JP-MYLANLABS-2018M1074868

PATIENT
  Age: 3 Month
  Sex: Male

DRUGS (1)
  1. VALPROIC ACID. [Suspect]
     Active Substance: VALPROIC ACID
     Indication: PRODUCT USED FOR UNKNOWN INDICATION
     Route: 065

REACTIONS (6)
  - Condition aggravated [Recovered/Resolved]
  - Automatism epileptic [Recovered/Resolved]
  - Seizure [Recovered/Resolved]
  - Hyperglycinaemia [Recovered/Resolved]
  - Infantile spasms [Recovered/Resolved]
  - Focal dyscognitive seizures [Recovered/Resolved]
